FAERS Safety Report 25363578 (Version 1)
Quarter: 2025Q2

REPORT INFORMATION
  Report Type: Report from Study
  Country: US (occurrence: US)
  Receive Date: 20250527
  Receipt Date: 20250527
  Transmission Date: 20250717
  Serious: Yes (Hospitalization, Other)
  Sender: UCB
  Company Number: US-UCBSA-2025021490

PATIENT
  Sex: Male

DRUGS (2)
  1. FINTEPLA [Suspect]
     Active Substance: FENFLURAMINE
     Indication: Lennox-Gastaut syndrome
     Dosage: 6 MILLILITER, 2X/DAY (BID)
     Dates: start: 20250321
  2. FINTEPLA [Suspect]
     Active Substance: FENFLURAMINE
     Dosage: 0.5 MILLILITER, 2X/DAY (BID)

REACTIONS (6)
  - Fall [Recovered/Resolved]
  - Seizure [Recovered/Resolved]
  - Psychomotor hyperactivity [Recovered/Resolved]
  - Abdominal pain upper [Recovered/Resolved]
  - Headache [Recovered/Resolved]
  - Nightmare [Recovered/Resolved]

NARRATIVE: CASE EVENT DATE: 20250101
